FAERS Safety Report 6194021-9 (Version None)
Quarter: 2009Q2

REPORT INFORMATION
  Report Type: 
  Country: None (occurrence: None)
  Receive Date: 20090518
  Receipt Date: 20090511
  Transmission Date: 20091009
  Serious: No
  Sender: FDA-Public Use
  Company Number: US-B.I. PHARMACEUTICALS,INC./RIDGEFIELD-2009-BP-05943BP

PATIENT
  Sex: Female

DRUGS (6)
  1. ZANTAC [Suspect]
     Indication: DYSPEPSIA
     Route: 048
     Dates: start: 20081201
  2. NIFEDIPINE [Concomitant]
     Indication: HYPERTENSION
     Dosage: 60MG
     Route: 048
  3. NIFEDIPINE [Concomitant]
     Indication: PAIN IN EXTREMITY
  4. NIFEDIPINE [Concomitant]
     Indication: POOR PERIPHERAL CIRCULATION
  5. LEVOTHYROXINE SODIUM [Concomitant]
     Indication: HYPOTHYROIDISM
     Dates: start: 19700101
  6. NEXIUM [Concomitant]
     Indication: OESOPHAGEAL DISORDER
     Route: 048
     Dates: start: 20070101

REACTIONS (1)
  - DIARRHOEA [None]
